FAERS Safety Report 16361054 (Version 1)
Quarter: 2019Q3

REPORT INFORMATION
  Report Type: Spontaneous
  Country: US (occurrence: US)
  Receive Date: 20190524
  Receipt Date: 20190524
  Transmission Date: 20191004
  Serious: Yes (Other)
  Sender: FDA-Public Use
  Company Number: None

PATIENT
  Age: 62 Year
  Sex: Male
  Weight: 145.8 kg

DRUGS (13)
  1. FUROSEMIDE 200MG DAILY [Concomitant]
  2. GLIPIZIDE 10MG TWICE DAILY [Concomitant]
  3. DILTIAZEM. [Suspect]
     Active Substance: DILTIAZEM
     Indication: ATRIAL FIBRILLATION
     Route: 048
     Dates: start: 20190514, end: 20190518
  4. LEVOTHYROXINE 50MCG DAILY [Concomitant]
  5. CARVEDILOL 25MG TWICE DAILY [Concomitant]
  6. LOSARTAN 25MG DAILY [Concomitant]
     Active Substance: LOSARTAN
  7. AMBRISENTAN 10MG DAILY [Concomitant]
  8. APIXABAN 5MG TWICE DAILY [Concomitant]
  9. ERECTAFIL 20MG DAILY [Concomitant]
  10. SPIRONOLACTONE 25MG DAILY [Concomitant]
  11. POTASSIUM CHLORIDE 20MEQ TWICE DAILY [Concomitant]
  12. ATORVASTATIN 40MG DAILY [Concomitant]
  13. METFORMIN 1000MG TWICE DAILY [Concomitant]

REACTIONS (1)
  - Stevens-Johnson syndrome [None]

NARRATIVE: CASE EVENT DATE: 20190518
